FAERS Safety Report 22233848 (Version 11)
Quarter: 2025Q4

REPORT INFORMATION
  Report Type: Report from Study
  Country: EU (occurrence: EU)
  Receive Date: 20230420
  Receipt Date: 20251107
  Transmission Date: 20260117
  Serious: Yes (Other)
  Sender: EXELIXIS
  Company Number: EU-IPSEN Group, Research and Development-2023-08893

PATIENT

DRUGS (46)
  1. CABOZANTINIB [Suspect]
     Active Substance: CABOZANTINIB
     Indication: Renal cell carcinoma
     Dosage: 40 MG, QD
     Route: 048
     Dates: start: 20230327, end: 20230607
  2. CABOZANTINIB [Suspect]
     Active Substance: CABOZANTINIB
     Dosage: 30 MG, QD
     Route: 048
     Dates: start: 20230623, end: 20230804
  3. CABOZANTINIB [Suspect]
     Active Substance: CABOZANTINIB
     Dosage: 20 MG, QD
     Route: 048
     Dates: start: 20230818, end: 20230928
  4. CABOZANTINIB [Suspect]
     Active Substance: CABOZANTINIB
     Dosage: 20 MG, QD
     Route: 048
     Dates: start: 20231028, end: 20240830
  5. CABOZANTINIB [Suspect]
     Active Substance: CABOZANTINIB
     Dosage: 20 MG, QD
     Route: 048
     Dates: start: 20241015, end: 20250325
  6. NIVOLUMAB [Suspect]
     Active Substance: NIVOLUMAB
     Indication: Renal cell carcinoma
     Dosage: 240 MG, ONCE
     Route: 042
     Dates: start: 20230327
  7. NIVOLUMAB [Suspect]
     Active Substance: NIVOLUMAB
     Dosage: 240 MG, ONCE
     Route: 042
     Dates: start: 20230411
  8. NIVOLUMAB [Suspect]
     Active Substance: NIVOLUMAB
     Dosage: 240 MG, ONCE
     Route: 042
     Dates: start: 20230428
  9. NIVOLUMAB [Suspect]
     Active Substance: NIVOLUMAB
     Dosage: 240 MG, ONCE
     Route: 042
     Dates: start: 20230512
  10. NIVOLUMAB [Suspect]
     Active Substance: NIVOLUMAB
     Dosage: 240 MG, ONCE
     Route: 042
     Dates: start: 20230526
  11. NIVOLUMAB [Suspect]
     Active Substance: NIVOLUMAB
     Dosage: 240 MG, ONCE
     Route: 042
     Dates: start: 20230623
  12. NIVOLUMAB [Suspect]
     Active Substance: NIVOLUMAB
     Dosage: 240 MG, ONCE
     Route: 042
     Dates: start: 20230707
  13. NIVOLUMAB [Suspect]
     Active Substance: NIVOLUMAB
     Dosage: 240 MG, ONCE
     Route: 042
     Dates: start: 20230721
  14. NIVOLUMAB [Suspect]
     Active Substance: NIVOLUMAB
     Dosage: 240 MG, ONCE
     Route: 042
     Dates: start: 20230818
  15. NIVOLUMAB [Suspect]
     Active Substance: NIVOLUMAB
     Dosage: 240 MG, ONCE
     Route: 042
     Dates: start: 20230901
  16. NIVOLUMAB [Suspect]
     Active Substance: NIVOLUMAB
     Dosage: 480 MG, ONCE
     Route: 042
     Dates: start: 20230929
  17. NIVOLUMAB [Suspect]
     Active Substance: NIVOLUMAB
     Dosage: 480 MG, ONCE
     Route: 042
     Dates: start: 20231027
  18. NIVOLUMAB [Suspect]
     Active Substance: NIVOLUMAB
     Dosage: 480 MG, ONCE
     Route: 042
     Dates: start: 20231124
  19. NIVOLUMAB [Suspect]
     Active Substance: NIVOLUMAB
     Dosage: 480 MG, ONCE
     Route: 042
     Dates: start: 20231222
  20. NIVOLUMAB [Suspect]
     Active Substance: NIVOLUMAB
     Dosage: 480 MG, ONCE
     Route: 042
     Dates: start: 20240119
  21. NIVOLUMAB [Suspect]
     Active Substance: NIVOLUMAB
     Dosage: 480 MG, ONCE
     Route: 042
     Dates: start: 20240216
  22. NIVOLUMAB [Suspect]
     Active Substance: NIVOLUMAB
     Dosage: 480 MG, ONCE
     Route: 042
     Dates: start: 20240315
  23. NIVOLUMAB [Suspect]
     Active Substance: NIVOLUMAB
     Dosage: 480 MG, ONCE
     Route: 042
     Dates: start: 20240412
  24. NIVOLUMAB [Suspect]
     Active Substance: NIVOLUMAB
     Dosage: 480 MG, ONCE
     Route: 042
     Dates: start: 20240510
  25. NIVOLUMAB [Suspect]
     Active Substance: NIVOLUMAB
     Dosage: 480 MG, ONCE
     Route: 042
     Dates: start: 20240607
  26. NIVOLUMAB [Suspect]
     Active Substance: NIVOLUMAB
     Dosage: 480 MG, ONCE
     Route: 042
     Dates: start: 20240705
  27. NIVOLUMAB [Suspect]
     Active Substance: NIVOLUMAB
     Dosage: 480 MG, ONCE
     Route: 042
     Dates: start: 20240802
  28. NIVOLUMAB [Suspect]
     Active Substance: NIVOLUMAB
     Dosage: 480 MG, ONCE
     Route: 042
     Dates: start: 20240830
  29. NIVOLUMAB [Suspect]
     Active Substance: NIVOLUMAB
     Dosage: 480 MG, ONCE
     Route: 042
     Dates: start: 20241015
  30. NIVOLUMAB [Suspect]
     Active Substance: NIVOLUMAB
     Dosage: 480 MG, ONCE
     Route: 042
     Dates: start: 20241112
  31. NIVOLUMAB [Suspect]
     Active Substance: NIVOLUMAB
     Dosage: 480 MG, ONCE
     Route: 042
     Dates: start: 20241210
  32. NIVOLUMAB [Suspect]
     Active Substance: NIVOLUMAB
     Dosage: 480 MG, ONCE
     Route: 042
     Dates: start: 20250107
  33. NIVOLUMAB [Suspect]
     Active Substance: NIVOLUMAB
     Dosage: 480 MG, ONCE
     Route: 042
     Dates: start: 20250204
  34. ATORVASTATIN [Concomitant]
     Active Substance: ATORVASTATIN
     Indication: Hypertension
     Dosage: UNK
     Route: 048
  35. Enalapril;Lercanidipine [Concomitant]
     Indication: Hypertension
     Dosage: UNK
     Route: 048
  36. INDAPAMIDE [Concomitant]
     Active Substance: INDAPAMIDE
     Indication: Hypertension
     Dosage: UNK
     Route: 048
  37. TIMOLOL MALEATE\TRAVOPROST [Concomitant]
     Active Substance: TIMOLOL MALEATE\TRAVOPROST
     Indication: Glaucoma
     Dosage: EYE DROPS
  38. IOPIDINE [Concomitant]
     Active Substance: APRACLONIDINE HYDROCHLORIDE
     Indication: Glaucoma
     Dosage: EYE DROPS
  39. TRUSOPT [Concomitant]
     Active Substance: DORZOLAMIDE HYDROCHLORIDE
     Indication: Glaucoma
     Dosage: EYE DROPS
  40. ATROPINE [Concomitant]
     Active Substance: ATROPINE
     Indication: Glaucoma
     Dosage: EYE DROPS
  41. DIAMOX SEQUELS [Concomitant]
     Active Substance: ACETAZOLAMIDE
     Indication: Glaucoma
     Dosage: UNK
     Route: 048
  42. ALIZAPRIDE [Concomitant]
     Active Substance: ALIZAPRIDE
     Indication: Vomiting
     Dosage: UNK
     Dates: start: 20230411, end: 20230411
  43. POTASSIUM CHLORIDE [Concomitant]
     Active Substance: POTASSIUM CHLORIDE
     Indication: Hypokalaemia
     Dosage: UNK
     Dates: start: 20230513, end: 20230527
  44. CALCIUM PHOSPHATE, DIBASIC, ANHYDROUS\MAGNESIUM GLYCEROPHOSPHATE\PHOSP [Concomitant]
     Active Substance: CALCIUM PHOSPHATE, DIBASIC, ANHYDROUS\MAGNESIUM GLYCEROPHOSPHATE\PHOSPHORIC ACID\SODIUM PHOSPHATE, D
     Indication: Hypophosphataemia
     Dosage: UNK
     Dates: start: 20230513, end: 20230527
  45. METOCLOPRAMIDE [Concomitant]
     Active Substance: METOCLOPRAMIDE
     Indication: Antiemetic supportive care
     Dosage: UNK
     Dates: start: 20230411
  46. MAGNESIUM [Concomitant]
     Active Substance: MAGNESIUM
     Indication: Magnesium deficiency
     Dosage: UNK
     Route: 048
     Dates: start: 20230513, end: 20230527

REACTIONS (6)
  - Renal failure [Recovered/Resolved]
  - Hepatic cytolysis [Recovering/Resolving]
  - Nausea [Recovered/Resolved]
  - Diarrhoea [Recovering/Resolving]
  - Asthenia [Recovering/Resolving]
  - Nausea [Recovering/Resolving]

NARRATIVE: CASE EVENT DATE: 20230410
